FAERS Safety Report 5445331-1 (Version None)
Quarter: 2007Q3

REPORT INFORMATION
  Report Type: 
  Country: None (occurrence: None)
  Receive Date: 20070906
  Receipt Date: 20070524
  Transmission Date: 20080115
  Serious: No
  Sender: FDA-Public Use
  Company Number: A0649992A

PATIENT
  Age: 38 Year
  Sex: Male

DRUGS (7)
  1. REQUIP [Suspect]
     Indication: RESTLESS LEGS SYNDROME
     Dosage: 2MG PER DAY
     Route: 048
     Dates: start: 20070401
  2. AMBIEN [Concomitant]
  3. ALBUTEROL [Concomitant]
  4. FLUTICASONE NASAL SPRAY [Concomitant]
  5. CODEINE SUL TAB [Concomitant]
  6. NEURONTIN [Concomitant]
     Indication: DEPRESSION
  7. ABILIFY [Concomitant]
     Indication: DEPRESSION

REACTIONS (2)
  - DRUG INEFFECTIVE [None]
  - RESTLESS LEGS SYNDROME [None]
